FAERS Safety Report 4414637-7 (Version None)
Quarter: 2004Q3

REPORT INFORMATION
  Report Type: 
  Country: None (occurrence: None)
  Receive Date: 20040729
  Receipt Date: 20040722
  Transmission Date: 20050211
  Serious: Yes (Disabling)
  Sender: FDA-Public Use
  Company Number: 04H-087-0267885-00

PATIENT
  Age: 60 Year
  Sex: Female

DRUGS (4)
  1. VECURONIUM BROMIDE [Suspect]
     Indication: LIFE SUPPORT
     Dosage: INTRAVENOUS
     Route: 042
  2. PREDNISOLONE [Suspect]
  3. MIDAZOLAM [Concomitant]
  4. METHYLPREDNISOLONE [Concomitant]

REACTIONS (3)
  - DRUG INTERACTION [None]
  - MYOPATHY [None]
  - QUADRIPLEGIA [None]
